FAERS Safety Report 4489456-6 (Version None)
Quarter: 2004Q4

REPORT INFORMATION
  Report Type: 
  Country: None (occurrence: None)
  Receive Date: 20041028
  Receipt Date: 20041020
  Transmission Date: 20050328
  Serious: Yes (Hospitalization)
  Sender: FDA-Public Use
  Company Number: HQWYE924821OCT04

PATIENT
  Age: 48 Year
  Sex: Male

DRUGS (7)
  1. ANCARON              (AMIODARONE) [Suspect]
     Indication: ATRIAL FIBRILLATION
     Dosage: SEE IMAGE
     Route: 048
     Dates: start: 20040920, end: 20040901
  2. ANCARON              (AMIODARONE) [Suspect]
     Indication: ATRIAL FIBRILLATION
     Dosage: SEE IMAGE
     Route: 048
     Dates: start: 20040901
  3. CARVEDILOL [Concomitant]
  4. ALDACTONE [Concomitant]
  5. LASIX [Concomitant]
  6. BLOPRESS           (CANDESARTAN CILEXETIL) [Concomitant]
  7. WARFARIN SODIUM [Concomitant]

REACTIONS (1)
  - BLOOD PRESSURE SYSTOLIC DECREASED [None]
